FAERS Safety Report 15656772 (Version 1)
Quarter: 2018Q4

REPORT INFORMATION
  Report Type: Spontaneous
  Country: US (occurrence: US)
  Receive Date: 20181126
  Receipt Date: 20181126
  Transmission Date: 20190205
  Serious: Yes (Hospitalization)
  Sender: FDA-Public Use
  Company Number: US-IMPAX LABORATORIES, LLC-2018-IPXL-03856

PATIENT
  Sex: Female
  Weight: 84 kg

DRUGS (2)
  1. RYTARY [Suspect]
     Active Substance: CARBIDOPA\LEVODOPA
     Indication: PARKINSON^S DISEASE
     Dosage: 61.25/245 MG, ONE CAPUSLE, FOUR TIMES A DAY
     Route: 048
     Dates: start: 201511
  2. RYTARY [Suspect]
     Active Substance: CARBIDOPA\LEVODOPA
     Dosage: 23.75/95 MG, ONE CAPUSLE, FOUR TIMES A DAY
     Route: 048
     Dates: start: 201511

REACTIONS (1)
  - Diverticulitis [Recovered/Resolved]
